FAERS Safety Report 6125118-7 (Version None)
Quarter: 2009Q1

REPORT INFORMATION
  Report Type: 
  Country: None (occurrence: None)
  Receive Date: 20090318
  Receipt Date: 20090303
  Transmission Date: 20090719
  Serious: Yes (Disabling)
  Sender: FDA-Public Use
  Company Number: 2009S1003768

PATIENT
  Age: 58 Year
  Sex: Male

DRUGS (6)
  1. FENTANYL-25 [Suspect]
     Indication: PROCEDURAL PAIN
     Dosage: INTRAVENOUS
     Route: 042
  2. SINEMET (CON.) [Concomitant]
  3. ENTACAPONE (CON.) [Concomitant]
  4. ROPINIROLE (CON.) [Concomitant]
  5. AMANTADINE (CON.) [Concomitant]
  6. TRIHEXYPHENIDYL (CON.) [Concomitant]

REACTIONS (2)
  - BRADYKINESIA [None]
  - MUSCLE RIGIDITY [None]
